FAERS Safety Report 15138172 (Version 1)
Quarter: 2018Q3

REPORT INFORMATION
  Report Type: Spontaneous
  Country: CZ (occurrence: CZ)
  Receive Date: 20180713
  Receipt Date: 20180713
  Transmission Date: 20181010
  Serious: Yes (Other)
  Sender: FDA-Public Use
  Company Number: CZ-ABBVIE-18S-217-2417591-00

PATIENT
  Sex: Male

DRUGS (1)
  1. KLACID [Suspect]
     Active Substance: CLARITHROMYCIN
     Indication: PRODUCT USED FOR UNKNOWN INDICATION
     Dosage: 500 MG, UNKNOWN
     Route: 065

REACTIONS (4)
  - Headache [Recovered/Resolved]
  - Product quality issue [Unknown]
  - Cough [Not Recovered/Not Resolved]
  - Gingival pain [Recovered/Resolved]

NARRATIVE: CASE EVENT DATE: 20180330
